FAERS Safety Report 17784334 (Version 1)
Quarter: 2020Q2

REPORT INFORMATION
  Report Type: Spontaneous
  Country: US (occurrence: US)
  Receive Date: 20200513
  Receipt Date: 20200513
  Transmission Date: 20200714
  Serious: No
  Sender: FDA-Public Use
  Company Number: US-TEVA-2020-US-1234290

PATIENT
  Sex: Female

DRUGS (2)
  1. BUPRENORPHINE TEVA [Suspect]
     Active Substance: BUPRENORPHINE
     Indication: PAIN MANAGEMENT
     Dosage: 15MCG/HOUR
     Route: 062
     Dates: start: 202001
  2. BUPRENORPHINE TEVA [Suspect]
     Active Substance: BUPRENORPHINE
     Indication: MYALGIA
     Dosage: 15MCG/HOUR
     Route: 062
     Dates: start: 202001

REACTIONS (5)
  - Application site pain [Unknown]
  - Drug ineffective [Unknown]
  - Paraesthesia [Unknown]
  - Lack of application site rotation [Unknown]
  - Product quality issue [Unknown]
